FAERS Safety Report 6267439-3 (Version None)
Quarter: 2009Q3

REPORT INFORMATION
  Report Type: 
  Country: None (occurrence: None)
  Receive Date: 20090714
  Receipt Date: 20090708
  Transmission Date: 20100115
  Serious: Yes (Death, Other)
  Sender: FDA-Public Use
  Company Number: AU-AVENTIS-200916756GDDC

PATIENT
  Age: 60 Year
  Sex: Female

DRUGS (4)
  1. TAXOTERE [Suspect]
     Dosage: DOSE: UNK
     Route: 042
  2. DOXORUBICIN HCL [Concomitant]
     Dosage: DOSE: UNK
  3. CYCLOPHOSPHAMIDE [Concomitant]
     Dosage: DOSE: UNK
  4. NEUPOGEN [Concomitant]
     Indication: PROPHYLAXIS
     Dosage: DOSE: UNK

REACTIONS (2)
  - DEATH [None]
  - GASTROINTESTINAL DISORDER [None]
